FAERS Safety Report 9896810 (Version 2)
Quarter: 2014Q1

REPORT INFORMATION
  Report Type: Spontaneous
  Country: US (occurrence: US)
  Receive Date: 20140213
  Receipt Date: 20140213
  Transmission Date: 20141002
  Serious: No
  Sender: FDA-Public Use
  Company Number: US-BRISTOL-MYERS SQUIBB COMPANY-19217546

PATIENT
  Age: 63 Year
  Sex: Female
  Weight: 94.33 kg

DRUGS (6)
  1. ORENCIA [Suspect]
     Indication: RHEUMATOID ARTHRITIS
     Dosage: 3 INFUSIONS
     Route: 040
     Dates: start: 20130823
  2. SULFASALAZINE [Concomitant]
  3. TYLENOL + CODEINE [Concomitant]
  4. NAPROXEN [Concomitant]
  5. PEPCID [Concomitant]
     Indication: GASTRIC DISORDER
  6. PREDNISONE [Concomitant]

REACTIONS (8)
  - Pain [Unknown]
  - Nausea [Unknown]
  - Drug ineffective [Unknown]
  - Fatigue [Unknown]
  - Pain in extremity [Unknown]
  - Upper-airway cough syndrome [Unknown]
  - Throat irritation [Unknown]
  - Headache [Unknown]
